FAERS Safety Report 11523512 (Version 2)
Quarter: 2015Q4

REPORT INFORMATION
  Report Type: Report from Study
  Country: CA (occurrence: CA)
  Receive Date: 20150918
  Receipt Date: 20151015
  Transmission Date: 20160304
  Serious: Yes (Hospitalization, Other)
  Sender: FDA-Public Use
  Company Number: CA-ABBVIE-15K-028-1464128-00

PATIENT
  Age: 39 Year
  Sex: Female

DRUGS (1)
  1. HUMIRA [Suspect]
     Active Substance: ADALIMUMAB
     Indication: CROHN^S DISEASE
     Route: 058
     Dates: start: 20100209

REACTIONS (6)
  - Abdominal adhesions [Recovered/Resolved with Sequelae]
  - Gastrointestinal obstruction [Recovered/Resolved with Sequelae]
  - Loss of consciousness [Recovered/Resolved]
  - Abdominal distension [Unknown]
  - Traumatic shock [Unknown]
  - Pain [Recovered/Resolved]

NARRATIVE: CASE EVENT DATE: 20150909
